FAERS Safety Report 4796413-9 (Version None)
Quarter: 2005Q4

REPORT INFORMATION
  Report Type: 
  Country: None (occurrence: None)
  Receive Date: 20051007
  Receipt Date: 20050929
  Transmission Date: 20060501
  Serious: Yes (Hospitalization)
  Sender: FDA-Public Use
  Company Number: 218161

PATIENT
  Age: 46 Year
  Sex: Female

DRUGS (11)
  1. RITUXAN [Suspect]
     Indication: NON-HODGKIN'S LYMPHOMA
     Dosage: 500 MG, X4, INTRAVENOUS
     Route: 042
     Dates: start: 20010927, end: 20011119
  2. CYTARABINE [Suspect]
     Indication: NON-HODGKIN'S LYMPHOMA
     Dosage: 40 MG,
     Dates: start: 20010917, end: 20011025
  3. METHOTREXATE [Suspect]
     Indication: NON-HODGKIN'S LYMPHOMA
     Dosage: 15 MG,
     Dates: start: 20010917, end: 20011025
  4. PREDONINE [Suspect]
     Indication: NON-HODGKIN'S LYMPHOMA
     Dosage: 10 MG,
     Dates: start: 20010917, end: 20011025
  5. LOXONINE          (LOXOPROFEN SODIUM) [Concomitant]
  6. CHLOR-TRIMETON (CHLORPHENIRAMINE MALEATE) [Concomitant]
  7. HYDROCORTISONE SODIUM SUCCINATE [Concomitant]
  8. IMIPENEM-CILASTATIN SODIUM (CILASTATIN SODIUM, IMIPENEM) [Concomitant]
  9. MINOCYCLINE HYDROCHLORIDE [Concomitant]
  10. FLUCONAZOLE [Concomitant]
  11. SULFAMETHOXAZOLE + TRIMETHOPRIM [Concomitant]

REACTIONS (4)
  - MALAISE [None]
  - PNEUMONIA [None]
  - PYREXIA [None]
  - WHITE BLOOD CELL COUNT DECREASED [None]
